FAERS Safety Report 14837610 (Version 1)
Quarter: 2018Q2

REPORT INFORMATION
  Report Type: Report from Study
  Country: CA (occurrence: CA)
  Receive Date: 20180502
  Receipt Date: 20180502
  Transmission Date: 20180711
  Serious: Yes (Other)
  Sender: FDA-Public Use
  Company Number: CA-JNJFOC-20180429278

PATIENT
  Age: 46 Year
  Sex: Male
  Weight: 104.33 kg

DRUGS (1)
  1. REMICADE [Suspect]
     Active Substance: INFLIXIMAB
     Indication: COLITIS ULCERATIVE
     Dosage: STRENGTH = 100 MG
     Route: 042

REACTIONS (5)
  - Hyperhidrosis [Recovering/Resolving]
  - Feeling hot [Recovering/Resolving]
  - Blood pressure decreased [Recovering/Resolving]
  - Infusion related reaction [Recovering/Resolving]
  - Presyncope [Recovering/Resolving]

NARRATIVE: CASE EVENT DATE: 20180422
